FAERS Safety Report 17745031 (Version 1)
Quarter: 2020Q2

REPORT INFORMATION
  Report Type: Spontaneous
  Country: US (occurrence: US)
  Receive Date: 20200504
  Receipt Date: 20200504
  Transmission Date: 20200714
  Serious: Yes (Hospitalization)
  Sender: FDA-Public Use
  Company Number: None

PATIENT
  Age: 58 Year
  Sex: Female
  Weight: 101.4 kg

DRUGS (1)
  1. YESCARTA [Suspect]
     Active Substance: AXICABTAGENE CILOLEUCEL
     Indication: DIFFUSE LARGE B-CELL LYMPHOMA
     Dosage: ?          OTHER ROUTE:IV?
     Route: 042
     Dates: start: 20200324, end: 20200324

REACTIONS (10)
  - Seizure [None]
  - Incoherent [None]
  - Confusional state [None]
  - Headache [None]
  - Clostridium test positive [None]
  - Retroperitoneal haematoma [None]
  - Febrile neutropenia [None]
  - Papilloedema [None]
  - Neurotoxicity [None]
  - Tachypnoea [None]

NARRATIVE: CASE EVENT DATE: 20200324
